FAERS Safety Report 9183254 (Version 1)
Quarter: 2013Q1

REPORT INFORMATION
  Report Type: Spontaneous
  Country: US (occurrence: US)
  Receive Date: 20130322
  Receipt Date: 20130322
  Transmission Date: 20140127
  Serious: No
  Sender: FDA-Public Use
  Company Number: US-BRISTOL-MYERS SQUIBB COMPANY-16941882

PATIENT
  Sex: Female

DRUGS (4)
  1. ERBITUX [Suspect]
     Indication: COLON CANCER STAGE IV
     Dosage: FINISHED IN MARCH
  2. FOLINIC ACID [Suspect]
     Indication: COLON CANCER STAGE IV
     Dosage: FINISHED IN MARCH
  3. 5-FLUOROURACIL [Suspect]
     Indication: COLON CANCER STAGE IV
     Dosage: FINISHED IN MARCH
  4. OXALIPLATIN [Suspect]
     Indication: COLON CANCER STAGE IV
     Dosage: FINISHED IN MARCH

REACTIONS (2)
  - Lung disorder [Unknown]
  - Liver disorder [Unknown]
